FAERS Safety Report 6233089-8 (Version None)
Quarter: 2009Q2

REPORT INFORMATION
  Report Type: 
  Country: None (occurrence: None)
  Receive Date: 20090616
  Receipt Date: 20090616
  Transmission Date: 20091009
  Serious: Yes (Hospitalization)
  Sender: FDA-Public Use
  Company Number: None

PATIENT
  Age: 60 Year
  Sex: Male
  Weight: 75.91 kg

DRUGS (1)
  1. CLOPIDOGREL [Suspect]
     Indication: VASCULAR OPERATION
     Dosage: 1 TAB EVERY DAY PO
     Route: 048
     Dates: start: 20090408, end: 20090612

REACTIONS (1)
  - GASTROINTESTINAL HAEMORRHAGE [None]
